FAERS Safety Report 4931643-4 (Version None)
Quarter: 2006Q1

REPORT INFORMATION
  Report Type: 
  Country: None (occurrence: None)
  Receive Date: 20060303
  Receipt Date: 20051107
  Transmission Date: 20060701
  Serious: No
  Sender: FDA-Public Use
  Company Number: US-BRISTOL-MYERS SQUIBB COMPANY-13175658

PATIENT

DRUGS (2)
  1. ERBITUX [Suspect]
  2. IRINOTECAN HCL [Concomitant]

REACTIONS (1)
  - PERIORBITAL OEDEMA [None]
